FAERS Safety Report 17940963 (Version 1)
Quarter: 2020Q2

REPORT INFORMATION
  Report Type: Spontaneous
  Country: US (occurrence: US)
  Receive Date: 20200624
  Receipt Date: 20200624
  Transmission Date: 20200714
  Serious: Yes (Death)
  Sender: FDA-Public Use
  Company Number: None

PATIENT
  Age: 76 Year
  Sex: Female
  Weight: 71 kg

DRUGS (1)
  1. CHLORHEXIDINE GLUCONATE ORAL RINSE [Suspect]
     Active Substance: CHLORHEXIDINE GLUCONATE
     Indication: DENTAL DISORDER PROPHYLAXIS
     Route: 003
     Dates: start: 20200610, end: 20200622

REACTIONS (3)
  - Angioedema [None]
  - Aspiration [None]
  - Anaphylactic reaction [None]

NARRATIVE: CASE EVENT DATE: 20200622
